FAERS Safety Report 7427985-3 (Version None)
Quarter: 2011Q2

REPORT INFORMATION
  Report Type: 
  Country: None (occurrence: None)
  Receive Date: 20110421
  Receipt Date: 20110216
  Transmission Date: 20111010
  Serious: Yes (Hospitalization)
  Sender: FDA-Public Use
  Company Number: US-BAYER-2011-015368

PATIENT
  Sex: Male
  Weight: 86.1 kg

DRUGS (12)
  1. SORAFENIB (RAF KINASE INHIBITOR) [Suspect]
     Indication: METASTASIS
  2. SYNTHROID [Concomitant]
     Dosage: 0.125 MG, QD
     Dates: start: 20090101
  3. CARBOPLATIN [Suspect]
     Indication: METASTASIS
  4. BENADRYL [Concomitant]
     Indication: RASH
  5. CARBOPLATIN [Suspect]
     Indication: HYPOPHARYNGEAL CANCER
  6. SORAFENIB (RAF KINASE INHIBITOR) [Suspect]
     Indication: HYPOPHARYNGEAL CANCER
     Dosage: 400 MG, BID
     Route: 048
     Dates: start: 20110203, end: 20110215
  7. PACLITAXEL [Suspect]
     Indication: METASTASIS
  8. SENOKOT [SENNA ALEXANDRINA] [Concomitant]
     Indication: CONSTIPATION
     Dosage: 1 DF, PRN
  9. ACETAMINOPHEN [Concomitant]
     Dosage: 650 MG, PRN
  10. PACLITAXEL [Suspect]
     Indication: HYPOPHARYNGEAL CANCER
  11. BENADRYL [Concomitant]
     Indication: PRURITUS
     Route: 061
  12. ZYRTEC [Concomitant]
     Dosage: 10 MG, QD
     Dates: start: 20090101

REACTIONS (2)
  - ASPIRATION [None]
  - SKIN DISORDER [None]
